FAERS Safety Report 9805845 (Version 2)
Quarter: 2014Q1

REPORT INFORMATION
  Report Type: Spontaneous
  Country: US (occurrence: US)
  Receive Date: 20140109
  Receipt Date: 20140224
  Transmission Date: 20141002
  Serious: No
  Sender: FDA-Public Use
  Company Number: US-009507513-1401USA003309

PATIENT
  Sex: Female
  Weight: 81.63 kg

DRUGS (3)
  1. OXYTROL FOR WOMEN [Suspect]
     Indication: INCONTINENCE
     Dosage: UNK, UNKNOWN
     Route: 062
  2. OXYTROL FOR WOMEN [Suspect]
     Indication: URGE INCONTINENCE
  3. SYNTHROID [Concomitant]
     Indication: HYPOTHYROIDISM
     Dosage: UNK, UNKNOWN

REACTIONS (1)
  - Drug ineffective [Unknown]
